FAERS Safety Report 8605866 (Version 3)
Quarter: 2012Q4

REPORT INFORMATION
  Report Type: 
  Country: US (occurrence: US)
  Receive Date: 20120608
  Receipt Date: 20121203
  Transmission Date: 20130627
  Serious: Yes (Death, Other)
  Sender: FDA-Public Use
  Company Number: US-ROCHE-1074851

PATIENT
  Age: 76 Year
  Sex: Male

DRUGS (1)
  1. ZELBORAF [Suspect]
     Indication: PRODUCT USED FOR UNKNOWN INDICATION
     Route: 065
     Dates: end: 20120601

REACTIONS (11)
  - Malignant melanoma [Fatal]
  - Blindness [Unknown]
  - Diplopia [Unknown]
  - Erythema [Unknown]
  - Rash [Unknown]
  - Oedema peripheral [Unknown]
  - Oedema peripheral [Unknown]
  - Decreased appetite [Unknown]
  - Asthenia [Unknown]
  - Burning sensation [Unknown]
  - Swelling [Unknown]
